FAERS Safety Report 6314529-2 (Version None)
Quarter: 2009Q3

REPORT INFORMATION
  Report Type: 
  Country: None (occurrence: None)
  Receive Date: 20090819
  Receipt Date: 20090810
  Transmission Date: 20100115
  Serious: Yes (Other)
  Sender: FDA-Public Use
  Company Number: PHHY2009BR33923

PATIENT
  Age: 70 Year
  Sex: Female
  Weight: 90 kg

DRUGS (1)
  1. DIOVAN AMLO FIX [Suspect]
     Dosage: 160/5 MG

REACTIONS (2)
  - HEADACHE [None]
  - HYPERTENSION [None]
